FAERS Safety Report 21166283 (Version 1)
Quarter: 2022Q3

REPORT INFORMATION
  Report Type: Spontaneous
  Country: US (occurrence: None)
  Receive Date: 20220802
  Receipt Date: 20220802
  Transmission Date: 20221027
  Serious: Yes (Other)
  Sender: FDA-Public Use
  Company Number: None

PATIENT
  Age: 61 Year
  Sex: Female
  Weight: 90 kg

DRUGS (1)
  1. PANTOPRAZOLE SODIUM [Suspect]
     Active Substance: PANTOPRAZOLE SODIUM
     Indication: Gastrooesophageal reflux disease
     Dosage: OTHER QUANTITY : 1 TABLET(S);?
     Route: 048

REACTIONS (8)
  - Drug ineffective [None]
  - Product colour issue [None]
  - Product supply issue [None]
  - Gastrooesophageal reflux disease [None]
  - Oesophageal pain [None]
  - Aspiration [None]
  - Product substitution issue [None]
  - Inability to afford medication [None]

NARRATIVE: CASE EVENT DATE: 20220802
